FAERS Safety Report 5675386-0 (Version None)
Quarter: 2008Q2

REPORT INFORMATION
  Report Type: 
  Country: None (occurrence: None)
  Receive Date: 20080307
  Receipt Date: 20070406
  Transmission Date: 20081010
  Serious: Yes (Hospitalization)
  Sender: FDA-Public Use
  Company Number: US200703003998

PATIENT
  Age: 78 Year
  Sex: Male

DRUGS (8)
  1. GEMZAR [Suspect]
     Indication: BLADDER CANCER
     Dosage: 1000 MG/M2,
     Dates: start: 20060101, end: 20070301
  2. THEOPHYLLINE [Concomitant]
  3. COUMADIN [Concomitant]
  4. BUMEX [Concomitant]
  5. NEXIUM [Concomitant]
  6. LISINOPRIL [Concomitant]
  7. SPIRIVA [Concomitant]
  8. SINGULAIR [Concomitant]

REACTIONS (1)
  - DYSPNOEA [None]
